FAERS Safety Report 15612975 (Version 1)
Quarter: 2018Q4

REPORT INFORMATION
  Report Type: Spontaneous
  Country: US (occurrence: US)
  Receive Date: 20181113
  Receipt Date: 20181113
  Transmission Date: 20190205
  Serious: Yes (Other)
  Sender: FDA-Public Use
  Company Number: US-PFIZER INC-2018460508

PATIENT
  Age: 66 Year
  Sex: Male

DRUGS (4)
  1. LENALIDOMIDE [Concomitant]
     Active Substance: LENALIDOMIDE
     Dosage: 10 MG, CYCLIC (DAILY FOR 21 DAYS, CONSOLIDATION CHEMOTHERAPY)
     Route: 048
  2. MITOXANTRONE HCL [Concomitant]
     Active Substance: MITOXANTRONE HYDROCHLORIDE
     Indication: ACUTE MYELOID LEUKAEMIA
     Dosage: UNK UNK, CYCLIC
  3. CYTARABINE. [Suspect]
     Active Substance: CYTARABINE
     Indication: ACUTE MYELOID LEUKAEMIA
     Dosage: 2 G/M2, CYCLIC (ONCE DAILY ON DAYS 1 THROUGH 5)
     Route: 042
  4. LENALIDOMIDE [Concomitant]
     Active Substance: LENALIDOMIDE
     Dosage: 10 MG, CYCLIC (DAILY, GIVEN FOR 21 DAYS OF A 28 DAY CYCLES FOR UP TO 12 MONTH, MAINTENANCE THERAPY
     Route: 048

REACTIONS (4)
  - Clostridium difficile colitis [Recovered/Resolved]
  - Rash [Unknown]
  - Sepsis [Recovered/Resolved]
  - Pyrexia [Unknown]
